FAERS Safety Report 14270543 (Version 1)
Quarter: 2017Q4

REPORT INFORMATION
  Report Type: Spontaneous
  Country: US (occurrence: US)
  Receive Date: 20171211
  Receipt Date: 20171211
  Transmission Date: 20180321
  Serious: Yes (Other)
  Sender: FDA-Public Use
  Company Number: US-OTSUKA-2016_007029

PATIENT
  Sex: Male

DRUGS (3)
  1. ABILIFY [Suspect]
     Active Substance: ARIPIPRAZOLE
     Indication: STRESS
  2. ABILIFY [Suspect]
     Active Substance: ARIPIPRAZOLE
     Indication: ANXIETY
  3. ABILIFY [Suspect]
     Active Substance: ARIPIPRAZOLE
     Indication: BIPOLAR DISORDER
     Dosage: 20 MG, QD
     Route: 048
     Dates: start: 2002

REACTIONS (13)
  - Pancreatic cyst [Unknown]
  - Bipolar disorder [Unknown]
  - Hepatic mass [Unknown]
  - Tremor [Unknown]
  - Social fear [Unknown]
  - Gambling disorder [Unknown]
  - Dependent personality disorder [Unknown]
  - Psychiatric symptom [Unknown]
  - Obsessive-compulsive disorder [Unknown]
  - Panic disorder [Unknown]
  - Off label use [Unknown]
  - Diabetes mellitus [Unknown]
  - Libido increased [Unknown]

NARRATIVE: CASE EVENT DATE: 2003
